FAERS Safety Report 9257333 (Version 1)
Quarter: 2013Q2

REPORT INFORMATION
  Report Type: Spontaneous
  Country: US (occurrence: US)
  Receive Date: 20130426
  Receipt Date: 20130426
  Transmission Date: 20140414
  Serious: Yes (Other)
  Sender: FDA-Public Use
  Company Number: US-BAYER-2013-051488

PATIENT
  Age: 34 Year
  Sex: Female
  Weight: 88.45 kg

DRUGS (11)
  1. YAZ [Suspect]
  2. HUMIRA [Concomitant]
     Dosage: 40 MG/0.8 ML
     Route: 058
  3. ATIVAN [Concomitant]
     Dosage: 0.5 MG, UNK
  4. TRAZODONE [Concomitant]
     Dosage: 100 MG, UNK
  5. ABILIFY [Concomitant]
     Dosage: 15 MG, UNK
  6. IMURAN [Concomitant]
     Dosage: 50 MG, UNK
  7. DOLOPHINE [Concomitant]
     Dosage: 5 MG, UNK
  8. PRILOSEC [Concomitant]
     Dosage: 20 MG, UNK
  9. PERCOCET [Concomitant]
     Dosage: 10-325 MG
  10. DELTASONE [Concomitant]
     Dosage: 20 MG, UNK
  11. LYRICA [Concomitant]
     Dosage: 75 MG, UNK

REACTIONS (1)
  - Deep vein thrombosis [Recovered/Resolved]
